FAERS Safety Report 10608243 (Version 1)
Quarter: 2014Q4

REPORT INFORMATION
  Report Type: Spontaneous
  Country: US (occurrence: US)
  Receive Date: 20141125
  Receipt Date: 20141125
  Transmission Date: 20150529
  Serious: No
  Sender: FDA-Public Use
  Company Number: US-TEVA-524600USA

PATIENT
  Age: 31 Year
  Sex: Female
  Weight: 66.74 kg

DRUGS (1)
  1. PARAGARD T380A [Suspect]
     Active Substance: COPPER
     Indication: CONTRACEPTION
     Route: 063
     Dates: start: 20141113, end: 20141113

REACTIONS (3)
  - Exposure during breast feeding [Unknown]
  - Device expulsion [Recovered/Resolved]
  - Pain [Unknown]

NARRATIVE: CASE EVENT DATE: 20141113
